FAERS Safety Report 8450381-7 (Version None)
Quarter: 2012Q2

REPORT INFORMATION
  Report Type: 
  Country: None (occurrence: None)
  Receive Date: 20120620
  Receipt Date: 20120615
  Transmission Date: 20120825
  Serious: Yes (Other)
  Sender: FDA-Public Use
  Company Number: US-PFIZER INC-2012145085

PATIENT
  Sex: Female
  Weight: 83.4 kg

DRUGS (1)
  1. PRISTIQ [Suspect]
     Indication: ANXIETY
     Dosage: 50 MG, ONCE
     Dates: start: 20120101, end: 20120101

REACTIONS (2)
  - PANIC ATTACK [None]
  - DYSPNOEA [None]
